FAERS Safety Report 8791505 (Version 1)
Quarter: 2012Q4

REPORT INFORMATION
  Report Type: Spontaneous
  Country: US (occurrence: None)
  Receive Date: 20120913
  Receipt Date: 20120913
  Transmission Date: 20130627
  Serious: Yes (Other)
  Sender: FDA-Public Use
  Company Number: CPI 3782

PATIENT
  Sex: Female

DRUGS (1)
  1. LACTULOSE [Suspect]
     Indication: CONSTIPATION
     Route: 048

REACTIONS (6)
  - Pneumonia [None]
  - Gastroenteritis [None]
  - Upper gastrointestinal haemorrhage [None]
  - Urinary tract infection [None]
  - Ileus [None]
  - Cellulitis [None]
